FAERS Safety Report 21491237 (Version 3)
Quarter: 2023Q1

REPORT INFORMATION
  Report Type: Spontaneous
  Country: US (occurrence: US)
  Receive Date: 20221021
  Receipt Date: 20230314
  Transmission Date: 20230418
  Serious: No
  Sender: FDA-Public Use
  Company Number: US-BRISTOL-MYERS SQUIBB COMPANY-2022-124620

PATIENT
  Age: 65 Year
  Sex: Female
  Weight: 101.97 kg

DRUGS (2)
  1. REVLIMID [Suspect]
     Active Substance: LENALIDOMIDE
     Indication: Plasma cell myeloma in remission
     Dosage: D 1-21 Q28 DAYS
     Route: 048
     Dates: start: 2019
  2. REVLIMID [Suspect]
     Active Substance: LENALIDOMIDE
     Indication: Plasma cell myeloma
     Route: 048
     Dates: start: 20211001

REACTIONS (9)
  - Urinary tract infection [Unknown]
  - Blood potassium decreased [Unknown]
  - Nasopharyngitis [Recovering/Resolving]
  - Pyrexia [Recovering/Resolving]
  - Ageusia [Recovering/Resolving]
  - Head discomfort [Recovering/Resolving]
  - Sinus disorder [Recovering/Resolving]
  - Productive cough [Recovering/Resolving]
  - Nausea [Recovered/Resolved]
